FAERS Safety Report 8002903-8 (Version None)
Quarter: 2011Q4

REPORT INFORMATION
  Report Type: 
  Country: None (occurrence: None)
  Receive Date: 20111222
  Receipt Date: 20110223
  Transmission Date: 20120403
  Serious: No
  Sender: FDA-Public Use
  Company Number: US-GLAXOSMITHKLINE-A0916381A

PATIENT
  Sex: Male

DRUGS (1)
  1. AVODART [Suspect]
     Indication: PROSTATOMEGALY
     Route: 065

REACTIONS (1)
  - ERECTILE DYSFUNCTION [None]
